FAERS Safety Report 6249792-X (Version None)
Quarter: 2009Q2

REPORT INFORMATION
  Report Type: 
  Country: None (occurrence: None)
  Receive Date: 20090629
  Receipt Date: 20090621
  Transmission Date: 20091009
  Serious: Yes (Death, Hospitalization, Other)
  Sender: FDA-Public Use
  Company Number: IN-ELI_LILLY_AND_COMPANY-IN200906004910

PATIENT
  Age: 75 Year
  Sex: Male

DRUGS (1)
  1. XIGRIS [Suspect]
     Indication: PNEUMOCOCCAL SEPSIS
     Dosage: 7.8 ML, EVERY HOUR
     Route: 065
     Dates: start: 20090617, end: 20090621

REACTIONS (3)
  - CARDIAC ARREST [None]
  - PLEURAL EFFUSION [None]
  - RESPIRATORY TRACT INFECTION FUNGAL [None]
